FAERS Safety Report 12458739 (Version 2)
Quarter: 2016Q2

REPORT INFORMATION
  Report Type: Spontaneous
  Country: US (occurrence: US)
  Receive Date: 20160613
  Receipt Date: 20160613
  Transmission Date: 20160815
  Serious: Yes (Hospitalization, Other)
  Sender: FDA-Public Use
  Company Number: US-CIPLA LTD.-2016US06468

PATIENT

DRUGS (10)
  1. PROPOFOL. [Suspect]
     Active Substance: PROPOFOL
     Indication: SEDATION
     Dosage: UNK
     Route: 065
  2. LEVETIRACETAM. [Suspect]
     Active Substance: LEVETIRACETAM
     Indication: STATUS EPILEPTICUS
     Dosage: UNK
     Route: 065
  3. RISPERIDONE. [Suspect]
     Active Substance: RISPERIDONE
     Indication: BRIEF PSYCHOTIC DISORDER, WITH POSTPARTUM ONSET
     Dosage: UNK, LOW DOSE
     Route: 065
  4. VENLAFAXINE [Suspect]
     Active Substance: VENLAFAXINE HYDROCHLORIDE
     Dosage: 150 MG, FROM 30 WEEKS GESTATION
     Route: 065
  5. LORAZEPAM. [Suspect]
     Active Substance: LORAZEPAM
     Indication: STATUS EPILEPTICUS
     Dosage: 6 MG
     Route: 042
  6. TOPIRAMATE. [Suspect]
     Active Substance: TOPIRAMATE
     Indication: EPILEPSY
     Dosage: UNK, AT STABLE, THERAPEUTIC DOSAGE
     Route: 065
  7. VENLAFAXINE [Suspect]
     Active Substance: VENLAFAXINE HYDROCHLORIDE
     Indication: MAJOR DEPRESSION
     Dosage: 225 MG
     Route: 065
  8. MAGNESIUM [Suspect]
     Active Substance: MAGNESIUM
     Indication: ECLAMPSIA
     Dosage: UNK
     Route: 042
  9. MAGNESIUM [Suspect]
     Active Substance: MAGNESIUM
     Indication: CONVULSION PROPHYLAXIS
  10. VENLAFAXINE [Suspect]
     Active Substance: VENLAFAXINE HYDROCHLORIDE
     Dosage: 75 MG, UNTIL 30 GESTATIONAL WEEKS
     Route: 065

REACTIONS (11)
  - Brief psychotic disorder, with postpartum onset [Recovered/Resolved]
  - Exposure during pregnancy [Unknown]
  - Eclampsia [Unknown]
  - Posterior reversible encephalopathy syndrome [Unknown]
  - Metabolic acidosis [Unknown]
  - Premature delivery [Unknown]
  - Anaemia [Unknown]
  - Status epilepticus [Recovered/Resolved]
  - Drug ineffective [Unknown]
  - Sleep disorder [Unknown]
  - Caesarean section [Unknown]
